FAERS Safety Report 17503534 (Version 4)
Quarter: 2020Q3

REPORT INFORMATION
  Report Type: Spontaneous
  Country: DE (occurrence: DE)
  Receive Date: 20200305
  Receipt Date: 20200921
  Transmission Date: 20201102
  Serious: Yes (Hospitalization, Other)
  Sender: FDA-Public Use
  Company Number: ALC2020DE001972

PATIENT

DRUGS (3)
  1. CYCLOPENTOLATE HCL [Suspect]
     Active Substance: CYCLOPENTOLATE HYDROCHLORIDE
     Indication: MYDRIASIS
     Dosage: STRENGTH: 1% FORMULATION: DROPS ([DRP] (DROP (1/12 MILLILITRE)); EVERY 10 MIN
     Route: 065
  2. CYCLOPENTOLATE HCL [Interacting]
     Active Substance: CYCLOPENTOLATE HYDROCHLORIDE
     Indication: CYCLOPLEGIA
  3. NOVALGIN (METAMIZOLE SODIUM) [Interacting]
     Active Substance: METAMIZOLE SODIUM
     Indication: HEADACHE
     Dosage: 20 [DRP] (DROP (1/12 MILLILITRE)) ONE DAY
     Route: 065
     Dates: start: 20200220, end: 20200220

REACTIONS (6)
  - Loss of consciousness [Recovered/Resolved]
  - Headache [Recovered/Resolved]
  - Drug interaction [Recovered/Resolved]
  - Condition aggravated [Recovered/Resolved]
  - Respiration abnormal [Recovered/Resolved]
  - Hyperventilation [Recovered/Resolved]

NARRATIVE: CASE EVENT DATE: 20200220
